FAERS Safety Report 14139785 (Version 11)
Quarter: 2018Q3

REPORT INFORMATION
  Report Type: Report from Study
  Country: DE (occurrence: DE)
  Receive Date: 20171029
  Receipt Date: 20180711
  Transmission Date: 20181010
  Serious: Yes (Death, Hospitalization, Other)
  Sender: FDA-Public Use
  Company Number: DE-BRISTOL-MYERS SQUIBB COMPANY-BMS-2017-091613

PATIENT
  Age: 79 Year
  Sex: Male

DRUGS (14)
  1. NIVOLUMAB [Suspect]
     Active Substance: NIVOLUMAB
     Indication: SQUAMOUS CELL CARCINOMA OF LUNG
     Dosage: 3 MG/KG, Q2WK
     Route: 042
     Dates: start: 20170830, end: 20170830
  2. NOVALGIN                           /00169801/ [Concomitant]
     Active Substance: ACETAMINOPHEN\CAFFEINE\PROPYPHENAZONE
     Indication: MALIGNANT NEOPLASM PROGRESSION
     Dosage: 120 GTT, UNK
     Route: 065
     Dates: end: 20171011
  3. PANTOPRAZOL [Concomitant]
     Active Substance: PANTOPRAZOLE SODIUM
     Indication: PRODUCT USED FOR UNKNOWN INDICATION
     Dosage: 40 MG, UNK
     Route: 065
     Dates: end: 20171011
  4. MADOPAR [Concomitant]
     Active Substance: BENSERAZIDE HYDROCHLORIDE\LEVODOPA
     Indication: PRODUCT USED FOR UNKNOWN INDICATION
     Dosage: 187.5 MG, UNK
     Route: 065
     Dates: end: 20171011
  5. GABAPENTIN. [Concomitant]
     Active Substance: GABAPENTIN
     Indication: PRODUCT USED FOR UNKNOWN INDICATION
     Dosage: 900 MG, UNK
     Route: 065
     Dates: end: 20171011
  6. TILIDIN [Concomitant]
     Active Substance: NALOXONE HYDROCHLORIDE\TILIDINE HYDROCHLORIDE
     Indication: MALIGNANT NEOPLASM PROGRESSION
     Dosage: UNK
     Route: 065
     Dates: start: 20170912, end: 20170913
  7. PAMIDRONAT DINATRIUM ALTERNOVA [Concomitant]
     Indication: MALIGNANT NEOPLASM PROGRESSION
     Dosage: 90 MG, QMO
     Route: 065
     Dates: start: 20170321, end: 20170511
  8. MAGNESIUM [Concomitant]
     Active Substance: MAGNESIUM
     Indication: PRODUCT USED FOR UNKNOWN INDICATION
     Dosage: UNK
     Route: 065
     Dates: end: 20171011
  9. BONDRONAT                          /01304701/ [Concomitant]
     Active Substance: IBANDRONATE SODIUM
     Indication: MALIGNANT NEOPLASM PROGRESSION
     Dosage: 6 MG, QMO
     Route: 065
     Dates: start: 20170620, end: 20171011
  10. TAMSULOSIN [Concomitant]
     Active Substance: TAMSULOSIN
     Indication: PRODUCT USED FOR UNKNOWN INDICATION
     Dosage: 0.4 MG, UNK
     Route: 065
     Dates: end: 20171011
  11. FOLIC ACID. [Concomitant]
     Active Substance: FOLIC ACID
     Indication: PRODUCT USED FOR UNKNOWN INDICATION
     Dosage: 5 MG, UNK
     Route: 065
     Dates: start: 20170911, end: 20171011
  12. ZOPICLON [Concomitant]
     Active Substance: ZOPICLONE
     Indication: PRODUCT USED FOR UNKNOWN INDICATION
     Dosage: 3.75 MG, UNK
     Route: 065
     Dates: end: 20171011
  13. HYDROMORPH [Concomitant]
     Active Substance: HYDROMORPHONE
     Indication: MALIGNANT NEOPLASM PROGRESSION
     Dosage: 6 MG, UNK
     Route: 065
     Dates: end: 20171011
  14. ELIQUIS [Concomitant]
     Active Substance: APIXABAN
     Indication: MALIGNANT NEOPLASM PROGRESSION
     Dosage: 10 MG, UNK
     Route: 065
     Dates: end: 20171011

REACTIONS (7)
  - Varices oesophageal [Unknown]
  - Constipation [Not Recovered/Not Resolved]
  - Sleep disorder [Unknown]
  - General physical health deterioration [Fatal]
  - Hiatus hernia [Unknown]
  - Folate deficiency [Unknown]
  - Nausea [Unknown]

NARRATIVE: CASE EVENT DATE: 20170911
